FAERS Safety Report 9476178 (Version 1)
Quarter: 2013Q3

REPORT INFORMATION
  Report Type: Spontaneous
  Country: GB (occurrence: None)
  Receive Date: 20130821
  Receipt Date: 20130821
  Transmission Date: 20140515
  Serious: Yes (Hospitalization)
  Sender: FDA-Public Use
  Company Number: GER/UKI/13/0034043

PATIENT
  Age: 72 Year
  Sex: Male
  Weight: 53 kg

DRUGS (15)
  1. CLOPIDOGREL (CLOPIDOGREL) [Suspect]
     Indication: PRODUCT USED FOR UNKNOWN INDICATION
     Route: 048
     Dates: start: 2010, end: 20130628
  2. ASPIRIN (ACETYLSALICYLIC ACID) [Suspect]
     Indication: PRODUCT USED FOR UNKNOWN INDICATION
     Route: 048
     Dates: start: 2010, end: 20130722
  3. TICAGRELOR (TICAGRELOR) [Suspect]
     Indication: PRODUCT USED FOR UNKNOWN INDICATION
     Dosage: 2 IN 1 D
     Route: 048
     Dates: start: 20130507, end: 20130722
  4. ATORVASTATIN (ATORVASTATIN) [Concomitant]
  5. CARBOCISTEINE (CARBOCISTEINE) [Concomitant]
  6. CARVEDILOL (CARVEDILOL) [Concomitant]
  7. GABAPENTIN (GABAPENTIN) [Concomitant]
  8. GTN (GLYERCERYL TRINITRATE) [Concomitant]
  9. LANSOPRAZOLE (LANSOPRAZOLE) [Concomitant]
  10. PARACETAMOL (PARACETAMOL) [Concomitant]
  11. QUININE SULPHATE (QUININE SULFATE) [Concomitant]
  12. RAMIPRIL (RAMIPRIL) [Concomitant]
  13. SALBUTAMOL (SALBUTAMOL) [Concomitant]
  14. SYMBICORT (SYMBICORT) [Concomitant]
  15. TIOTROPIUM BROMIDE (TIOTROPIUM BROMIDE) [Concomitant]

REACTIONS (5)
  - Haemoglobin decreased [None]
  - Blood urine present [None]
  - Rectal haemorrhage [None]
  - Haematemesis [None]
  - Myocardial infarction [None]
